FAERS Safety Report 12981007 (Version 3)
Quarter: 2016Q4

REPORT INFORMATION
  Report Type: Spontaneous
  Country: ES (occurrence: ES)
  Receive Date: 20161128
  Receipt Date: 20161209
  Transmission Date: 20170207
  Serious: Yes (Hospitalization, Other)
  Sender: FDA-Public Use
  Company Number: ES-AMGEN-ESPSP2016160160

PATIENT
  Age: 52 Year
  Sex: Male

DRUGS (6)
  1. ENANTYUM [Concomitant]
     Active Substance: DEXKETOPROFEN TROMETAMOL
     Indication: PAIN
     Dosage: 25 MG, 3X/DAY (EVERY 8 HOURS)
  2. PREDNISONE. [Concomitant]
     Active Substance: PREDNISONE
     Indication: RHEUMATOID ARTHRITIS
     Dosage: 1 DF, 1X/DAY
  3. PANTOPRAZOLE [Concomitant]
     Active Substance: PANTOPRAZOLE SODIUM
     Indication: PROPHYLAXIS
     Dosage: 40 MG, 1X/DAY (EVERY 24 HOURS)
  4. DACORTIN [Concomitant]
     Active Substance: PREDNISONE
     Dosage: 1 DF, 1X/DAY (1 DF OF 30 MG 1X/DAY IN THE MORNING FOR 5 DAYS,SUBSEQUENTLY 5 MG 1X/DAY)
  5. ENBREL [Suspect]
     Active Substance: ETANERCEPT
     Indication: RHEUMATOID ARTHRITIS
     Dosage: 50 MG, WEEKLY
     Route: 058
     Dates: start: 20161003
  6. METHOTREXATE SODIUM. [Suspect]
     Active Substance: METHOTREXATE SODIUM
     Indication: PRODUCT USED FOR UNKNOWN INDICATION
     Dosage: UNK
     Route: 065

REACTIONS (11)
  - Mean cell haemoglobin concentration abnormal [Not Recovered/Not Resolved]
  - Condition aggravated [Recovered/Resolved]
  - Staphylococcal infection [Recovering/Resolving]
  - Blood glucose abnormal [Not Recovered/Not Resolved]
  - Bursitis [Recovering/Resolving]
  - Groin pain [Recovered/Resolved]
  - Aspartate aminotransferase abnormal [Not Recovered/Not Resolved]
  - Gamma-glutamyltransferase abnormal [Not Recovered/Not Resolved]
  - Arthritis infective [Recovering/Resolving]
  - Alanine aminotransferase abnormal [Not Recovered/Not Resolved]
  - Haemoglobin abnormal [Not Recovered/Not Resolved]

NARRATIVE: CASE EVENT DATE: 201611
